FAERS Safety Report 11122427 (Version 1)
Quarter: 2015Q2

REPORT INFORMATION
  Report Type: Spontaneous
  Country: US (occurrence: None)
  Receive Date: 20150518
  Receipt Date: 20150518
  Transmission Date: 20150821
  Serious: Yes (Disabling)
  Sender: FDA-Public Use
  Company Number: None

PATIENT
  Age: 18 Year
  Sex: Male
  Weight: 58.97 kg

DRUGS (2)
  1. AMITRIPTYLINE HCL [Suspect]
     Active Substance: AMITRIPTYLINE
     Indication: HEADACHE
     Dosage: 1 PILL ONCE DAILY TAKEN BY MOUTH
     Route: 048
     Dates: start: 20150310, end: 20150323
  2. LIPOFLAVANOID VITAMIN SUPPLEMENT [Concomitant]

REACTIONS (3)
  - Vertigo [None]
  - Balance disorder [None]
  - Tinnitus [None]

NARRATIVE: CASE EVENT DATE: 20150319
